FAERS Safety Report 9532119 (Version 2)
Quarter: 2014Q1

REPORT INFORMATION
  Report Type: Spontaneous
  Country: US (occurrence: None)
  Receive Date: 20130329
  Receipt Date: 20130627
  Transmission Date: 20141002
  Serious: No
  Sender: FDA-Public Use
  Company Number: 1000042192

PATIENT
  Age: 81 Year
  Sex: Female

DRUGS (7)
  1. LINZESS [Suspect]
     Indication: CONSTIPATION
     Dosage: 145 MCG (145 MCG, 1 IN 1 D), ORAL
     Route: 048
     Dates: start: 20130121
  2. LINZESS [Suspect]
     Indication: IMPAIRED GASTRIC EMPTYING
     Dosage: 145 MCG (145 MCG, 1 IN 1 D), ORAL
     Route: 048
     Dates: start: 20130121
  3. NEXIUM (ESOMEPRAZOLE) (ESOMEPRAZOLE) [Concomitant]
  4. MIRAPEX (PRAMIPEXOLE DIHYDROCHLORIDE) (PRAMIPEXOLE DIHYDROCHLORIDE) [Concomitant]
  5. ZOFRAN (ONDANSETRON) (ONDANSETRON) [Concomitant]
  6. BYSTOLIC (NEBIVOLOL HYDROCHLORIDE) (NEBIVOLOL HYDROCHLORIDE) [Concomitant]
  7. SINGULAIR (MONTELUKAST SODIUM) (MONTELUKAST SODIUM) [Concomitant]

REACTIONS (4)
  - Diarrhoea [None]
  - Abdominal pain [None]
  - Abdominal distension [None]
  - Flatulence [None]
